FAERS Safety Report 16157578 (Version 1)
Quarter: 2019Q2

REPORT INFORMATION
  Report Type: Spontaneous
  Country: US (occurrence: US)
  Receive Date: 20190228
  Receipt Date: 20190228
  Transmission Date: 20190711
  Serious: No
  Sender: FDA-Public Use
  Company Number: None

PATIENT

DRUGS (1)
  1. WARFARIN [Suspect]
     Active Substance: WARFARIN
     Route: 048
     Dates: start: 20180411, end: 20180622

REACTIONS (8)
  - Haematuria [None]
  - Abdominal pain [None]
  - Urinary retention [None]
  - Hyperkalaemia [None]
  - Bladder catheterisation [None]
  - Haemoglobin decreased [None]
  - Packed red blood cell transfusion [None]
  - Thrombosis in device [None]

NARRATIVE: CASE EVENT DATE: 20180622
